FAERS Safety Report 25730519 (Version 2)
Quarter: 2025Q4

REPORT INFORMATION
  Report Type: Spontaneous
  Country: SG (occurrence: SG)
  Receive Date: 20250827
  Receipt Date: 20251014
  Transmission Date: 20260117
  Serious: Yes (Other)
  Sender: MYLAN
  Company Number: SG-MYLANLABS-2025M1072314

PATIENT
  Age: 52 Year
  Sex: Male

DRUGS (16)
  1. ATORVASTATIN [Interacting]
     Active Substance: ATORVASTATIN
     Indication: Coronary artery disease
     Dosage: 20 MILLIGRAM, PM (QPM)
     Route: 065
  2. ATORVASTATIN [Interacting]
     Active Substance: ATORVASTATIN
     Indication: Lipid management
     Dosage: 20 MILLIGRAM, PM (QPM)
  3. ATORVASTATIN [Interacting]
     Active Substance: ATORVASTATIN
     Dosage: 20 MILLIGRAM, PM (QPM)
  4. ATORVASTATIN [Interacting]
     Active Substance: ATORVASTATIN
     Dosage: 20 MILLIGRAM, PM (QPM)
     Route: 065
  5. ATORVASTATIN [Interacting]
     Active Substance: ATORVASTATIN
     Dosage: 10 MILLIGRAM, PM (1 TIME DAILY (Q.P.M))
     Route: 065
  6. ATORVASTATIN [Interacting]
     Active Substance: ATORVASTATIN
     Dosage: 10 MILLIGRAM, PM (1 TIME DAILY (Q.P.M))
  7. ATORVASTATIN [Interacting]
     Active Substance: ATORVASTATIN
     Dosage: 10 MILLIGRAM, PM (1 TIME DAILY (Q.P.M))
  8. ATORVASTATIN [Interacting]
     Active Substance: ATORVASTATIN
     Dosage: 10 MILLIGRAM, PM (1 TIME DAILY (Q.P.M))
     Route: 065
  9. TICAGRELOR [Interacting]
     Active Substance: TICAGRELOR
     Indication: Antiplatelet therapy
     Dosage: 90 MILLIGRAM, BID (2 TIMES DAILY)
  10. TICAGRELOR [Interacting]
     Active Substance: TICAGRELOR
     Dosage: 90 MILLIGRAM, BID (2 TIMES DAILY)
     Route: 065
  11. TICAGRELOR [Interacting]
     Active Substance: TICAGRELOR
     Dosage: 90 MILLIGRAM, BID (2 TIMES DAILY)
     Route: 065
  12. TICAGRELOR [Interacting]
     Active Substance: TICAGRELOR
     Dosage: 90 MILLIGRAM, BID (2 TIMES DAILY)
  13. EZETIMIBE [Concomitant]
     Active Substance: EZETIMIBE
     Indication: Coronary artery disease
     Dosage: 10 MILLIGRAM, PM (1 TIME DAILY QPM)
  14. EZETIMIBE [Concomitant]
     Active Substance: EZETIMIBE
     Indication: Lipid management
     Dosage: 10 MILLIGRAM, PM (1 TIME DAILY QPM)
     Route: 065
  15. EZETIMIBE [Concomitant]
     Active Substance: EZETIMIBE
     Dosage: 10 MILLIGRAM, PM (1 TIME DAILY QPM)
     Route: 065
  16. EZETIMIBE [Concomitant]
     Active Substance: EZETIMIBE
     Dosage: 10 MILLIGRAM, PM (1 TIME DAILY QPM)

REACTIONS (4)
  - Drug level increased [Unknown]
  - Myopathy [Unknown]
  - Drug interaction [Unknown]
  - Drug-genetic interaction [Unknown]
